FAERS Safety Report 8777438 (Version 4)
Quarter: 2013Q2

REPORT INFORMATION
  Report Type: Spontaneous
  Country: US (occurrence: US)
  Receive Date: 20120911
  Receipt Date: 20130514
  Transmission Date: 20140414
  Serious: No
  Sender: FDA-Public Use
  Company Number: US-009507513-1209USA002911

PATIENT
  Sex: Female

DRUGS (10)
  1. VICTRELIS [Suspect]
     Indication: HEPATITIS C
     Dosage: 800 MG, TID
     Dates: start: 201207
  2. PEGINTRON [Suspect]
     Dosage: 120 MICROGRAM, QW
     Dates: start: 201102
  3. PEGINTRON [Suspect]
     Dosage: UNK
  4. PEGINTRON [Suspect]
     Dosage: UNK
  5. PEGINTRON [Suspect]
     Dosage: UNK
  6. PEGINTRON [Suspect]
     Dosage: UNK
  7. PEGINTRON [Suspect]
     Dosage: UNK
  8. RIBASPHERE [Concomitant]
     Dosage: UNK
     Dates: start: 201102
  9. LUNESTA [Concomitant]
  10. CITALOPRAM [Concomitant]

REACTIONS (3)
  - Weight decreased [Not Recovered/Not Resolved]
  - Depression [Not Recovered/Not Resolved]
  - Decreased appetite [Not Recovered/Not Resolved]
